FAERS Safety Report 11345120 (Version 2)
Quarter: 2015Q3

REPORT INFORMATION
  Report Type: Spontaneous
  Country: US (occurrence: US)
  Receive Date: 20150806
  Receipt Date: 20150812
  Transmission Date: 20151125
  Serious: Yes (Hospitalization, Other)
  Sender: FDA-Public Use
  Company Number: CHPA2015US009234

PATIENT
  Age: 61 Year
  Sex: Female

DRUGS (2)
  1. VOLTAREN [Suspect]
     Active Substance: DICLOFENAC SODIUM
     Dosage: 4 G, QID TO BACK
     Route: 061
  2. VOLTAREN [Suspect]
     Active Substance: DICLOFENAC SODIUM
     Indication: BONE DISORDER
     Dosage: 4 G, 2 TO 3 TIMES A DAY TO LEG
     Route: 061
     Dates: start: 201507, end: 20150802

REACTIONS (14)
  - Drug level increased [Unknown]
  - Peripheral swelling [Recovering/Resolving]
  - Thrombosis [Unknown]
  - Contusion [Not Recovered/Not Resolved]
  - Back injury [Recovering/Resolving]
  - Skin tightness [Unknown]
  - Inappropriate schedule of drug administration [Unknown]
  - Therapeutic response unexpected [Unknown]
  - Memory impairment [Not Recovered/Not Resolved]
  - Concomitant disease aggravated [Unknown]
  - Drug ineffective for unapproved indication [Unknown]
  - Vein disorder [Not Recovered/Not Resolved]
  - Accident [Unknown]
  - Drug administered at inappropriate site [Unknown]

NARRATIVE: CASE EVENT DATE: 2015
